FAERS Safety Report 16443142 (Version 5)
Quarter: 2019Q4

REPORT INFORMATION
  Report Type: Spontaneous
  Country: US (occurrence: US)
  Receive Date: 20190617
  Receipt Date: 20191018
  Transmission Date: 20200122
  Serious: Yes (Other)
  Sender: FDA-Public Use
  Company Number: US-TAKEDA-2019TUS037206

PATIENT
  Age: 72 Year
  Sex: Male

DRUGS (1)
  1. NINLARO [Suspect]
     Active Substance: IXAZOMIB CITRATE
     Indication: PLASMA CELL MYELOMA
     Dosage: 3 MILLIGRAM, 1/WEEK
     Route: 048
     Dates: start: 20181205

REACTIONS (11)
  - Myalgia [Unknown]
  - Nasopharyngitis [Unknown]
  - Dizziness [Unknown]
  - Lethargy [Unknown]
  - Dyspnoea [Unknown]
  - Nausea [Unknown]
  - Restlessness [Unknown]
  - Insomnia [Unknown]
  - Balance disorder [Unknown]
  - Chills [Unknown]
  - Off label use [Unknown]

NARRATIVE: CASE EVENT DATE: 20190702
